FAERS Safety Report 14425623 (Version 3)
Quarter: 2018Q1

REPORT INFORMATION
  Report Type: Report from Study
  Country: None (occurrence: CH)
  Receive Date: 20180123
  Receipt Date: 20180219
  Transmission Date: 20180509
  Serious: Yes (Death, Other)
  Sender: FDA-Public Use
  Company Number: CH-ABBVIE-18P-151-2226560-00

PATIENT
  Age: 72 Year
  Sex: Female

DRUGS (3)
  1. NOPIL [Concomitant]
     Active Substance: SULFAMETHOXAZOLE\TRIMETHOPRIM
     Indication: PROPHYLAXIS
     Dosage: MONDAY, WEDNESDAY, FRIDAY
  2. VENETOCLAX. [Suspect]
     Active Substance: VENETOCLAX
     Indication: CHRONIC LYMPHOCYTIC LEUKAEMIA
     Route: 048
     Dates: start: 20170720
  3. COLECALCIFEROL VITAMIN D3 [Concomitant]
     Indication: PRODUCT USED FOR UNKNOWN INDICATION

REACTIONS (16)
  - Fall [Unknown]
  - Fluid overload [Unknown]
  - Neoplasm progression [Unknown]
  - Pancytopenia [Unknown]
  - Concussion [Unknown]
  - Facial bones fracture [Unknown]
  - Amnesia [Unknown]
  - Chronic lymphocytic leukaemia transformation [Unknown]
  - Acute kidney injury [Unknown]
  - Pyrexia [Fatal]
  - General physical health deterioration [Unknown]
  - Lymphadenopathy [Unknown]
  - Subarachnoid haemorrhage [Unknown]
  - Neutropenia [Unknown]
  - Renal failure [Fatal]
  - Hypophosphataemia [Unknown]

NARRATIVE: CASE EVENT DATE: 20171231
